FAERS Safety Report 4422145-2 (Version None)
Quarter: 2004Q3

REPORT INFORMATION
  Report Type: 
  Country: None (occurrence: None)
  Receive Date: 20040806
  Receipt Date: 20040729
  Transmission Date: 20050211
  Serious: Yes (Hospitalization, Other)
  Sender: FDA-Public Use
  Company Number: 2004051428

PATIENT
  Age: 48 Year
  Sex: Female

DRUGS (2)
  1. DILANTIN [Suspect]
     Indication: ILL-DEFINED DISORDER
     Dosage: 300 MG, (100 MG, 3 IN 1 D), ORAL
     Route: 048
  2. PHENYTOIN [Suspect]
     Indication: ILL-DEFINED DISORDER

REACTIONS (9)
  - ACCIDENT [None]
  - ANTICONVULSANT DRUG LEVEL DECREASED [None]
  - ARTHRITIS [None]
  - BACK DISORDER [None]
  - CONVULSION [None]
  - HEADACHE [None]
  - PHARMACEUTICAL PRODUCT COMPLAINT [None]
  - ROAD TRAFFIC ACCIDENT [None]
  - TREATMENT NONCOMPLIANCE [None]
